FAERS Safety Report 20130732 (Version 1)
Quarter: 2021Q4

REPORT INFORMATION
  Report Type: Spontaneous
  Country: JP (occurrence: JP)
  Receive Date: 20211130
  Receipt Date: 20211130
  Transmission Date: 20220303
  Serious: Yes (Other)
  Sender: FDA-Public Use
  Company Number: JP-PFIZER INC-202101598676

PATIENT
  Sex: Male

DRUGS (2)
  1. CORTRIL [Suspect]
     Active Substance: HYDROCORTISONE
     Indication: Hypopituitarism
  2. CORTRIL [Suspect]
     Active Substance: HYDROCORTISONE
     Indication: Hormone level abnormal

REACTIONS (3)
  - Seizure [Unknown]
  - Emotional distress [Unknown]
  - Off label use [Unknown]
